FAERS Safety Report 5486697-6 (Version None)
Quarter: 2007Q4

REPORT INFORMATION
  Report Type: 
  Country: None (occurrence: None)
  Receive Date: 20071016
  Receipt Date: 20071005
  Transmission Date: 20080405
  Serious: Yes (Hospitalization)
  Sender: FDA-Public Use
  Company Number: FR-BAYER-200510453BFR

PATIENT
  Age: 74 Year
  Sex: Male

DRUGS (10)
  1. CIFLOX [Suspect]
     Indication: PROSTATITIS
     Dosage: TOTAL DAILY DOSE: 1000 MG  UNIT DOSE: 1000 MG
     Route: 048
     Dates: start: 20050429, end: 20050505
  2. OROKEN [Suspect]
     Indication: PROSTATITIS
     Route: 048
     Dates: start: 20050429, end: 20050505
  3. ZELITREX [Suspect]
     Indication: HERPES VIRUS INFECTION
     Route: 048
     Dates: start: 20050428, end: 20050502
  4. XATRAL [Concomitant]
     Indication: BENIGN PROSTATIC HYPERPLASIA
     Route: 065
     Dates: start: 20050504
  5. AVODART [Concomitant]
     Indication: BENIGN PROSTATIC HYPERPLASIA
     Route: 065
     Dates: start: 20050504
  6. HYTACAND [Concomitant]
     Indication: UNEVALUABLE EVENT
     Route: 048
  7. BUFLOMEDIL [Concomitant]
     Indication: UNEVALUABLE EVENT
  8. ALLOPURINOL [Concomitant]
     Indication: UNEVALUABLE EVENT
  9. PREVISCAN [Concomitant]
     Indication: UNEVALUABLE EVENT
     Route: 048
     Dates: start: 20050428
  10. SERESTA [Concomitant]
     Indication: UNEVALUABLE EVENT

REACTIONS (1)
  - VASCULAR PURPURA [None]
